FAERS Safety Report 25073056 (Version 5)
Quarter: 2025Q4

REPORT INFORMATION
  Report Type: Spontaneous
  Country: JP (occurrence: JP)
  Receive Date: 20250313
  Receipt Date: 20251113
  Transmission Date: 20260118
  Serious: Yes (Hospitalization, Other)
  Sender: ROCHE
  Company Number: JP-CHUGAI-2025007167

PATIENT
  Age: 63 Year
  Sex: Female

DRUGS (2)
  1. ENSPRYNG [Suspect]
     Active Substance: SATRALIZUMAB-MWGE
     Indication: Neuromyelitis optica spectrum disorder
     Dosage: UNK
     Route: 058
     Dates: end: 2025
  2. ENSPRYNG [Suspect]
     Active Substance: SATRALIZUMAB-MWGE
     Dosage: UNK
     Route: 058
     Dates: end: 2025

REACTIONS (8)
  - Septic shock [Recovered/Resolved]
  - Urinary tract infection [Recovered/Resolved]
  - Pyelonephritis [Not Recovered/Not Resolved]
  - Disseminated intravascular coagulation [Recovered/Resolved]
  - Renal impairment [Recovered/Resolved]
  - Calculus urinary [Not Recovered/Not Resolved]
  - Bacteraemia [Recovered/Resolved]
  - COVID-19 [Recovered/Resolved]

NARRATIVE: CASE EVENT DATE: 20250218
